FAERS Safety Report 23776137 (Version 1)
Quarter: 2024Q2

REPORT INFORMATION
  Report Type: Spontaneous
  Country: US (occurrence: US)
  Receive Date: 20240424
  Receipt Date: 20240424
  Transmission Date: 20240716
  Serious: Yes (Other)
  Sender: FDA-Public Use
  Company Number: US-CADILA HEALTHCARE LIMITED-US-ZYDUS-105702

PATIENT

DRUGS (2)
  1. TAMOXIFEN [Suspect]
     Active Substance: TAMOXIFEN
     Indication: Gynaecomastia
     Dosage: 20 MILLIGRAM, QD
     Route: 065
  2. ANASTROZOLE [Suspect]
     Active Substance: ANASTROZOLE
     Indication: Gynaecomastia
     Dosage: UNK
     Route: 065

REACTIONS (2)
  - Disorder of sex development [Unknown]
  - Drug ineffective [Unknown]
